FAERS Safety Report 7189452-4 (Version None)
Quarter: 2010Q4

REPORT INFORMATION
  Report Type: 
  Country: None (occurrence: None)
  Receive Date: 20101223
  Receipt Date: 20101214
  Transmission Date: 20110411
  Serious: Yes (Other)
  Sender: FDA-Public Use
  Company Number: NL-AMGEN-NLDSP2010009727

PATIENT

DRUGS (2)
  1. ENBREL [Suspect]
     Indication: RHEUMATOID ARTHRITIS
     Dosage: 50 MG, WEEKLY
     Dates: start: 20101116, end: 20100101
  2. ENBREL [Suspect]
     Dosage: 50 MG, WEEKLY
     Dates: start: 20100101

REACTIONS (2)
  - LOCALISED INFECTION [None]
  - THERAPEUTIC PROCEDURE [None]
